FAERS Safety Report 10135659 (Version 2)
Quarter: 2015Q1

REPORT INFORMATION
  Report Type: Other
  Country: US (occurrence: US)
  Receive Date: 20140428
  Receipt Date: 20150218
  Transmission Date: 20150720
  Serious: Yes (Death, Hospitalization, Other)
  Sender: FDA-Public Use
  Company Number: US-GSKPPD-2014GSK037284

PATIENT
  Age: 58 Year
  Sex: Female
  Weight: 64.01 kg

DRUGS (9)
  1. ISORDIL [Concomitant]
     Active Substance: ISOSORBIDE DINITRATE
  2. ATENOLOL. [Concomitant]
     Active Substance: ATENOLOL
  3. PLAVIX [Concomitant]
     Active Substance: CLOPIDOGREL BISULFATE
  4. IMDUR [Concomitant]
     Active Substance: ISOSORBIDE MONONITRATE
  5. NITROGLYCERIN. [Concomitant]
     Active Substance: NITROGLYCERIN
  6. AVANDIA [Suspect]
     Active Substance: ROSIGLITAZONE MALEATE
     Indication: DIABETES MELLITUS
     Dosage: AVANDIA WAS NOT LISTED AMONG THE PATIENTS RECORDS REVIEWED.
     Route: 048
  7. ASPIRIN. [Concomitant]
     Active Substance: ASPIRIN
  8. LOPRESSOR [Concomitant]
     Active Substance: METOPROLOL TARTRATE
  9. DIOVAN [Concomitant]
     Active Substance: VALSARTAN

REACTIONS (4)
  - Ischaemic cardiomyopathy [Unknown]
  - Coronary artery disease [Unknown]
  - Acute myocardial infarction [Recovered/Resolved]
  - Cardiogenic shock [Fatal]

NARRATIVE: CASE EVENT DATE: 20041130
